FAERS Safety Report 6329235-8 (Version None)
Quarter: 2009Q3

REPORT INFORMATION
  Report Type: 
  Country: None (occurrence: None)
  Receive Date: 20090826
  Receipt Date: 20090814
  Transmission Date: 20100115
  Serious: Yes (Other)
  Sender: FDA-Public Use
  Company Number: US-PFIZER INC-2009256748

PATIENT

DRUGS (1)
  1. ZITHROMAX [Suspect]

REACTIONS (1)
  - HAEMATOCHEZIA [None]
